FAERS Safety Report 11859920 (Version 1)
Quarter: 2015Q4

REPORT INFORMATION
  Report Type: Spontaneous
  Country: CN (occurrence: CN)
  Receive Date: 20151222
  Receipt Date: 20151222
  Transmission Date: 20160305
  Serious: Yes (Other)
  Sender: FDA-Public Use
  Company Number: CN-BAYER-2015-488859

PATIENT
  Sex: Female

DRUGS (1)
  1. YASMIN [Suspect]
     Active Substance: DROSPIRENONE\ETHINYL ESTRADIOL
     Dosage: UNK
     Route: 048
     Dates: end: 201511

REACTIONS (3)
  - Haemorrhage in pregnancy [None]
  - Maternal exposure before pregnancy [None]
  - Withdrawal bleed [None]

NARRATIVE: CASE EVENT DATE: 2015
